FAERS Safety Report 8158354-9 (Version None)
Quarter: 2012Q1

REPORT INFORMATION
  Report Type: 
  Country: None (occurrence: None)
  Receive Date: 20120223
  Receipt Date: 20120209
  Transmission Date: 20120608
  Serious: Yes (Other)
  Sender: FDA-Public Use
  Company Number: NL-TEVA-322807ISR

PATIENT
  Sex: Female

DRUGS (5)
  1. DOXYCYCLINE [Suspect]
     Indication: BRONCHITIS
     Dosage: 200 MILLIGRAM;
     Route: 048
     Dates: start: 20120123, end: 20120123
  2. LIPITOR [Concomitant]
     Indication: HYPERCHOLESTEROLAEMIA
     Dosage: 10 MILLIGRAM;
     Route: 048
     Dates: start: 19960101
  3. IRBESARTAN [Concomitant]
     Dosage: 150/12.5MG
     Route: 048
     Dates: start: 20090101, end: 20120128
  4. DOXYCYCLINE [Suspect]
     Dosage: 100 MILLIGRAM;
     Route: 048
     Dates: start: 20120124, end: 20120128
  5. ZOLOFT [Concomitant]
     Indication: DEPRESSION
     Dosage: 50 MILLIGRAM;
     Route: 048
     Dates: start: 19960101

REACTIONS (6)
  - DELUSION [None]
  - LOSS OF CONSCIOUSNESS [None]
  - DIARRHOEA [None]
  - VOMITING [None]
  - CONFUSIONAL STATE [None]
  - PYREXIA [None]
